FAERS Safety Report 23068720 (Version 1)
Quarter: 2023Q4

REPORT INFORMATION
  Report Type: Spontaneous
  Country: DE (occurrence: DE)
  Receive Date: 20231016
  Receipt Date: 20231016
  Transmission Date: 20240109
  Serious: Yes (Congenital Anomaly)
  Sender: FDA-Public Use
  Company Number: None

PATIENT
  Age: 1 Day
  Sex: Female
  Weight: 3.29 kg

DRUGS (3)
  1. VENLAFAXINE [Suspect]
     Active Substance: VENLAFAXINE HYDROCHLORIDE
     Indication: Borderline personality disorder
     Dosage: 150 [MG/D (BIS 37.5 MG/D) ]
     Route: 064
     Dates: start: 20200529, end: 20210214
  2. PROGESTERONE [Concomitant]
     Active Substance: PROGESTERONE
     Indication: Prophylaxis of abortion
     Route: 064
  3. LEVOTHYROXINE SODIUM [Concomitant]
     Active Substance: LEVOTHYROXINE SODIUM
     Indication: Thyroidectomy
     Dosage: 175 [+#181;G/D (BIS 150 +#181;G/D) ]
     Route: 064
     Dates: start: 20200529, end: 20210214

REACTIONS (2)
  - Foetal exposure during pregnancy [Unknown]
  - Oesophageal atresia [Unknown]

NARRATIVE: CASE EVENT DATE: 20210201
